FAERS Safety Report 4320700-1 (Version None)
Quarter: 2004Q1

REPORT INFORMATION
  Report Type: 
  Country: None (occurrence: None)
  Receive Date: 20040318
  Receipt Date: 20040301
  Transmission Date: 20041129
  Serious: No
  Sender: FDA-Public Use
  Company Number: F04200300197

PATIENT
  Age: 72 Year
  Sex: Female

DRUGS (4)
  1. ARIXTRA [Suspect]
     Indication: HIP ARTHROPLASTY
     Dosage: 2.5 MG OD SUBCUTANEOUS
     Route: 058
     Dates: start: 20030311, end: 20030315
  2. ARIXTRA [Suspect]
     Indication: THROMBOSIS PROPHYLAXIS
     Dosage: 2.5 MG OD SUBCUTANEOUS
     Route: 058
     Dates: start: 20030311, end: 20030315
  3. NOVALDIN INJ [Concomitant]
  4. VIOXX [Concomitant]

REACTIONS (3)
  - ANAEMIA [None]
  - DUODENAL ULCER [None]
  - GASTROINTESTINAL HAEMORRHAGE [None]
